FAERS Safety Report 9178345 (Version 1)
Quarter: 2013Q1

REPORT INFORMATION
  Report Type: Report from Study
  Country: DE (occurrence: DE)
  Receive Date: 20130321
  Receipt Date: 20130321
  Transmission Date: 20140127
  Serious: Yes (Hospitalization, Other)
  Sender: FDA-Public Use
  Company Number: DE-ROCHE-1204258

PATIENT
  Age: 68 Year
  Sex: Female
  Weight: 83 kg

DRUGS (1)
  1. TOCILIZUMAB [Suspect]
     Indication: RHEUMATOID ARTHRITIS
     Route: 042
     Dates: start: 20120726

REACTIONS (2)
  - Renal failure [Unknown]
  - Nasopharyngitis [Recovered/Resolved]
